FAERS Safety Report 6407547-7 (Version None)
Quarter: 2009Q4

REPORT INFORMATION
  Report Type: 
  Country: None (occurrence: None)
  Receive Date: 20091015
  Receipt Date: 20091002
  Transmission Date: 20100525
  Serious: Yes (Death)
  Sender: FDA-Public Use
  Company Number: A-CH2009-27814

PATIENT
  Age: 70 Year
  Sex: Female

DRUGS (2)
  1. TRACLEER [Suspect]
     Indication: PULMONARY HYPERTENSION
     Dosage: 125 MG, BID, ORAL, 62.5 MG, BID,  ORAL
     Route: 048
     Dates: start: 20070101, end: 20070101
  2. TRACLEER [Suspect]
     Indication: PULMONARY HYPERTENSION
     Dosage: 125 MG, BID, ORAL, 62.5 MG, BID,  ORAL
     Route: 048
     Dates: start: 20070101

REACTIONS (1)
  - CARDIAC FAILURE [None]
